FAERS Safety Report 4621716-8 (Version None)
Quarter: 2005Q1

REPORT INFORMATION
  Report Type: 
  Country: None (occurrence: None)
  Receive Date: 20050329
  Receipt Date: 20050316
  Transmission Date: 20050727
  Serious: Yes (Other)
  Sender: FDA-Public Use
  Company Number: ESWYE508316MAR05

PATIENT
  Age: 50 Year

DRUGS (3)
  1. ENBREL [Suspect]
     Indication: RHEUMATOID ARTHRITIS
     Route: 058
  2. METHOTREXATE [Suspect]
     Indication: RHEUMATOID ARTHRITIS
     Dosage: UNKNOWN
  3. ANTIDEPRESSANT NOS [Concomitant]

REACTIONS (2)
  - HAEMOLYSIS [None]
  - HYPERBILIRUBINAEMIA [None]
